FAERS Safety Report 10427287 (Version 3)
Quarter: 2014Q4

REPORT INFORMATION
  Report Type: Spontaneous
  Country: US (occurrence: US)
  Receive Date: 20140903
  Receipt Date: 20141014
  Transmission Date: 20150528
  Serious: Yes (Hospitalization, Other)
  Sender: FDA-Public Use
  Company Number: US-ACTELION-A-NJ2014-104394

PATIENT
  Age: 58 Year
  Sex: Female

DRUGS (2)
  1. VALCHLOR [Suspect]
     Active Substance: MECHLORETHAMINE
     Dosage: 0.016 UNK, QOD
     Route: 061
     Dates: end: 201408
  2. VALCHLOR [Suspect]
     Active Substance: MECHLORETHAMINE
     Indication: MYCOSIS FUNGOIDES
     Dosage: 0.016 %, QOD
     Route: 061
     Dates: start: 20140212

REACTIONS (2)
  - Chemotherapy [Not Recovered/Not Resolved]
  - Biopsy [Unknown]
